FAERS Safety Report 7522351-4 (Version None)
Quarter: 2011Q2

REPORT INFORMATION
  Report Type: 
  Country: None (occurrence: None)
  Receive Date: 20110603
  Receipt Date: 20110525
  Transmission Date: 20111010
  Serious: Yes (Life-Threatening, Hospitalization)
  Sender: FDA-Public Use
  Company Number: JP-TYCO HEALTHCARE/MALLINCKRODT-T201100956

PATIENT
  Age: 73 Year
  Sex: Female
  Weight: 53 kg

DRUGS (7)
  1. FERROUS CITRATE [Concomitant]
     Indication: ANAEMIA
     Dosage: 100 MG, QD
     Route: 048
     Dates: start: 20110513
  2. ETIZOLAM [Concomitant]
     Dosage: 0.5 MG, QD
     Route: 048
  3. DILTIAZEM HCL [Concomitant]
     Dosage: 100 MG, QD
     Route: 048
  4. LANSOPRAZOLE [Concomitant]
     Dosage: 30 MG, QD
     Route: 048
     Dates: start: 20110513
  5. METOPROLOL TARTRATE [Concomitant]
     Indication: HEART RATE INCREASED
     Dosage: 20 MG, QD
     Route: 048
     Dates: start: 20110512, end: 20110512
  6. OPTIRAY 300 [Suspect]
     Indication: COMPUTERISED TOMOGRAM
     Dosage: 10 ML, SINGLE
     Route: 042
     Dates: start: 20110512, end: 20110512
  7. ENALAPRIL MALEATE [Concomitant]
     Dosage: 5 G, QD
     Route: 048

REACTIONS (1)
  - ANAPHYLACTIC SHOCK [None]
